FAERS Safety Report 5492273-1 (Version None)
Quarter: 2007Q4

REPORT INFORMATION
  Report Type: 
  Country: None (occurrence: None)
  Receive Date: 20071022
  Receipt Date: 20070711
  Transmission Date: 20080405
  Serious: Yes (Hospitalization)
  Sender: FDA-Public Use
  Company Number: US-SANOFI-SYNTHELABO-A03200701949

PATIENT
  Sex: Male

DRUGS (14)
  1. UROXATRAL [Suspect]
     Indication: BENIGN PROSTATIC HYPERPLASIA
     Route: 048
     Dates: start: 20070101
  2. AMARYL [Concomitant]
     Dosage: UNK
     Route: 048
  3. ALLOPURINOL [Concomitant]
     Dosage: UNK
     Route: 048
  4. ASPIRIN [Concomitant]
     Dosage: UNK
     Route: 048
  5. AVAPRO [Concomitant]
     Dosage: UNK
     Route: 048
  6. GLYSET [Concomitant]
     Dosage: UNK
     Route: 048
  7. HUMULIN 70/30 [Concomitant]
     Dosage: UNK
     Route: 058
  8. HUMULIN N [Concomitant]
     Dosage: UNK
     Route: 058
  9. HYDRALAZINE HYDROCHLORIDE [Concomitant]
     Dosage: UNK
     Route: 048
  10. LASIX [Concomitant]
     Dosage: UNK
     Route: 048
  11. LIPITOR [Concomitant]
     Dosage: UNK
     Route: 048
  12. METOPROLOL [Concomitant]
     Dosage: UNK
     Route: 048
  13. NITROSTAT [Concomitant]
     Dosage: UNK
     Route: 060
  14. NITROFURANTOIN [Concomitant]
     Dosage: UNK
     Route: 048

REACTIONS (1)
  - SYNCOPE [None]
